FAERS Safety Report 10225162 (Version 2)
Quarter: 2014Q3

REPORT INFORMATION
  Report Type: Spontaneous
  Country: JP (occurrence: JP)
  Receive Date: 20140609
  Receipt Date: 20140702
  Transmission Date: 20150326
  Serious: Yes (Death)
  Sender: FDA-Public Use
  Company Number: JP-BAYER-2014-080337

PATIENT
  Age: 81 Year
  Sex: Female
  Weight: 49 kg

DRUGS (6)
  1. STIVARGA [Suspect]
     Active Substance: REGORAFENIB
     Indication: RECTAL CANCER METASTATIC
     Dosage: 80 MG, QD
     Route: 048
     Dates: start: 20140522, end: 20140527
  2. LASIX [Concomitant]
     Active Substance: FUROSEMIDE
     Indication: ASCITES
     Dosage: DAILY DOSE 40 MG
     Route: 048
     Dates: start: 20140524, end: 20140528
  3. LASIX [Concomitant]
     Active Substance: FUROSEMIDE
     Indication: ASCITES
     Dosage: DAILY DOSE 10 MG
     Dates: start: 20140529, end: 20140609
  4. SPIRONOLACTONE. [Concomitant]
     Active Substance: SPIRONOLACTONE
     Indication: ASCITES
     Dosage: DAILY DOSE 25 MG
     Route: 048
     Dates: start: 20140524, end: 20140528
  5. URSO [Concomitant]
     Active Substance: URSODIOL
     Indication: PROPHYLAXIS
     Dosage: DAILY DOSE 150 MG
     Route: 048
     Dates: start: 20140522, end: 20140527
  6. MORPHINE [Concomitant]
     Active Substance: MORPHINE
     Indication: PAIN
     Dosage: DAILY DOSE 120 MG
     Dates: start: 20140527, end: 20140610

REACTIONS (4)
  - Chest X-ray abnormal [Unknown]
  - Intention tremor [Recovered/Resolved]
  - Rectal cancer metastatic [Fatal]
  - Asthenia [Not Recovered/Not Resolved]

NARRATIVE: CASE EVENT DATE: 20140525
